FAERS Safety Report 9645305 (Version 4)
Quarter: 2013Q4

REPORT INFORMATION
  Report Type: Spontaneous
  Country: JP (occurrence: JP)
  Receive Date: 20131025
  Receipt Date: 20131210
  Transmission Date: 20140711
  Serious: Yes (Other)
  Sender: FDA-Public Use
  Company Number: JP-PFIZER INC-2013264309

PATIENT
  Age: 56 Year
  Sex: Male

DRUGS (2)
  1. CELECOX [Suspect]
     Indication: BACK PAIN
     Dosage: UNK
     Route: 048
  2. LYRICA [Concomitant]
     Indication: BACK PAIN
     Dosage: UNK
     Route: 048

REACTIONS (2)
  - Leukaemia [Unknown]
  - Aplastic anaemia [Recovering/Resolving]
